FAERS Safety Report 7095647-0 (Version None)
Quarter: 2010Q4

REPORT INFORMATION
  Report Type: 
  Country: None (occurrence: None)
  Receive Date: 20101111
  Receipt Date: 20101029
  Transmission Date: 20110411
  Serious: Yes (Other)
  Sender: FDA-Public Use
  Company Number: PHHY2010CA16893

PATIENT
  Sex: Female

DRUGS (8)
  1. EXJADE [Suspect]
     Indication: MYELODYSPLASTIC SYNDROME
     Dosage: 2 TABLETS OF 500 MG
     Route: 048
     Dates: start: 20100301
  2. EXJADE [Suspect]
     Indication: LEUKAEMIA
     Dosage: 2000 MG DAILY
     Route: 048
     Dates: start: 20100311, end: 20100318
  3. EXJADE [Suspect]
     Dosage: ONE TABLET OF 500 MG
     Route: 048
  4. EXJADE [Suspect]
     Dosage: 02 TABLETS/ 1000 MG QD
     Route: 048
  5. BISOPROLOL [Concomitant]
     Indication: BLOOD PRESSURE
     Dosage: 2.5 MG, QD
     Route: 048
  6. ASPIRIN [Concomitant]
     Indication: BLOOD DISORDER
     Dosage: 325 MG, QD
     Route: 048
  7. ASPIRIN [Concomitant]
     Indication: ATRIAL FIBRILLATION
  8. PANTOPRAZOLE [Concomitant]
     Indication: GASTROOESOPHAGEAL REFLUX DISEASE
     Dosage: 40 MG, QD
     Route: 048

REACTIONS (14)
  - ABDOMINAL PAIN [None]
  - ABDOMINAL PAIN UPPER [None]
  - BLOOD CREATININE INCREASED [None]
  - CONSTIPATION [None]
  - DECREASED APPETITE [None]
  - DYSPEPSIA [None]
  - FUNGAL INFECTION [None]
  - HEADACHE [None]
  - MALAISE [None]
  - MIDDLE INSOMNIA [None]
  - NAUSEA [None]
  - RASH [None]
  - TUMOUR EXCISION [None]
  - VOMITING [None]
